FAERS Safety Report 18149889 (Version 2)
Quarter: 2020Q4

REPORT INFORMATION
  Report Type: Report from Study
  Country: US (occurrence: US)
  Receive Date: 20200814
  Receipt Date: 20201030
  Transmission Date: 20210113
  Serious: Yes (Death, Hospitalization)
  Sender: FDA-Public Use
  Company Number: US-IMMUNOMEDICS, INC.-2020IMMU000502

PATIENT
  Age: 58 Year
  Sex: Female

DRUGS (4)
  1. TRODELVY [Suspect]
     Active Substance: SACITUZUMAB GOVITECAN-HZIY
     Dosage: 600 MG, DAY 1 AND 8 OF 21 DAY CYCLE
     Route: 065
     Dates: start: 20200706, end: 20200706
  2. TRODELVY [Suspect]
     Active Substance: SACITUZUMAB GOVITECAN-HZIY
     Dosage: 600 MG, DAY 1 AND 8 OF 21 DAY CYCLE
     Route: 065
     Dates: start: 20200622, end: 20200622
  3. TRODELVY [Suspect]
     Active Substance: SACITUZUMAB GOVITECAN-HZIY
     Dosage: 600 MG, DAY 1 AND 8 OF 21 DAY CYCLE
     Route: 065
     Dates: start: 20200714, end: 20200714
  4. TRODELVY [Suspect]
     Active Substance: SACITUZUMAB GOVITECAN-HZIY
     Indication: BREAST CANCER FEMALE
     Dosage: 600 MG, DAY 1 AND 8 OF 21 DAY CYCLE
     Route: 065
     Dates: start: 20200611, end: 20200611

REACTIONS (2)
  - Hospitalisation [Unknown]
  - Death [Fatal]

NARRATIVE: CASE EVENT DATE: 20200727
